FAERS Safety Report 9494569 (Version 5)
Quarter: 2017Q3

REPORT INFORMATION
  Report Type: Spontaneous
  Country: US (occurrence: US)
  Receive Date: 20130903
  Receipt Date: 20170721
  Transmission Date: 20171128
  Serious: Yes (Other)
  Sender: FDA-Public Use
  Company Number: US-PFIZER INC-2013177412

PATIENT
  Age: 64 Year
  Sex: Female

DRUGS (14)
  1. NAPROXEN. [Suspect]
     Active Substance: NAPROXEN
     Indication: PAIN MANAGEMENT
     Dosage: 200 MG, 2X/DAY
  2. ALEVE [Suspect]
     Active Substance: NAPROXEN SODIUM
     Indication: ARTHRALGIA
     Dosage: 220 MG, 3X/DAY
  3. CELEBREX [Suspect]
     Active Substance: CELECOXIB
     Indication: ARTHRITIS
     Dosage: 1 DF, UNK
  4. MOTRIN IB [Suspect]
     Active Substance: IBUPROFEN
     Indication: PAIN MANAGEMENT
     Dosage: UNK
  5. NAPROXEN SODIUM. [Suspect]
     Active Substance: NAPROXEN SODIUM
     Indication: SPINAL PAIN
     Dosage: 220 MG, 2X/DAY
  6. ASPIRINE [Suspect]
     Active Substance: ASPIRIN
     Indication: PAIN MANAGEMENT
     Dosage: 500 MG, 2X/DAY
  7. TYLENOL [Concomitant]
     Active Substance: ACETAMINOPHEN
     Indication: PAIN MANAGEMENT
     Dosage: OVER 3000 MG A DAY
  8. NAPROXEN SODIUM. [Suspect]
     Active Substance: NAPROXEN SODIUM
     Indication: ARTHRITIS
     Dosage: 220 MG, 2X/DAY
     Dates: start: 2004
  9. NAPROXEN SODIUM. [Suspect]
     Active Substance: NAPROXEN SODIUM
     Indication: ARTHRALGIA
     Dosage: 220 MG, 3X/DAY
  10. IBUPROFEN. [Suspect]
     Active Substance: IBUPROFEN
     Dosage: UNK
  11. ALEVE [Suspect]
     Active Substance: NAPROXEN SODIUM
     Indication: SPINAL PAIN
     Dosage: 500 MG, 2X/DAY
  12. VICODIN [Concomitant]
     Active Substance: ACETAMINOPHEN\HYDROCODONE BITARTRATE
     Indication: PAIN MANAGEMENT
     Dosage: 5/325 MG, 4X/DAY
     Dates: start: 2006
  13. GABAPENTIN. [Suspect]
     Active Substance: GABAPENTIN
     Indication: OSTEOARTHRITIS
     Dosage: UNK
  14. ALEVE [Suspect]
     Active Substance: NAPROXEN SODIUM
     Indication: ARTHRITIS
     Dosage: 220 MG, 2X/DAY
     Dates: start: 2004

REACTIONS (6)
  - Gastric ulcer [Unknown]
  - Epigastric discomfort [Unknown]
  - Gastric perforation [Unknown]
  - Abdominal discomfort [Unknown]
  - Abdominal pain upper [Unknown]
  - Drug intolerance [Unknown]
